FAERS Safety Report 11401197 (Version 1)
Quarter: 2015Q3

REPORT INFORMATION
  Report Type: Spontaneous
  Country: FR (occurrence: FR)
  Receive Date: 20150820
  Receipt Date: 20150820
  Transmission Date: 20151125
  Serious: Yes (Hospitalization, Other)
  Sender: FDA-Public Use
  Company Number: FR-GLAXOSMITHKLINE-FR2015GSK119783

PATIENT
  Age: 55 Year
  Sex: Male

DRUGS (4)
  1. LEVACT (BENDAMUSTINE HYDROCHLORIDE) [Suspect]
     Active Substance: BENDAMUSTINE HYDROCHLORIDE
     Indication: FOLLICLE CENTRE LYMPHOMA, FOLLICULAR GRADE I, II, III
     Dosage: 200 MG/M2, 1D
     Route: 042
     Dates: start: 20150623, end: 20150624
  2. ALKERAN [Suspect]
     Active Substance: MELPHALAN
     Indication: FOLLICLE CENTRE LYMPHOMA, FOLLICULAR GRADE I, II, III
     Dosage: 140 MG/M2, 1D
     Route: 042
     Dates: start: 20150629, end: 20150629
  3. ETOPOPHOS [Suspect]
     Active Substance: ETOPOSIDE PHOSPHATE
     Indication: FOLLICLE CENTRE LYMPHOMA, FOLLICULAR GRADE I, II, III
     Dosage: 180 MG, BID
     Route: 042
     Dates: start: 20150625, end: 20150628
  4. CYTARABINE. [Suspect]
     Active Substance: CYTARABINE
     Indication: FOLLICLE CENTRE LYMPHOMA, FOLLICULAR GRADE I, II, III
     Dosage: 360 MG, BID
     Route: 042
     Dates: start: 20150625, end: 20150628

REACTIONS (7)
  - Cholestasis [Recovering/Resolving]
  - Ascites [Recovering/Resolving]
  - Venoocclusive disease [Recovered/Resolved]
  - Acute kidney injury [Recovered/Resolved]
  - Weight increased [Recovering/Resolving]
  - Thrombocytopenia [Recovering/Resolving]
  - Hyperbilirubinaemia [Recovered/Resolved]

NARRATIVE: CASE EVENT DATE: 20150702
